FAERS Safety Report 4468946-6 (Version None)
Quarter: 2004Q4

REPORT INFORMATION
  Report Type: 
  Country: None (occurrence: None)
  Receive Date: 20041005
  Receipt Date: 20040914
  Transmission Date: 20050328
  Serious: Yes (Hospitalization)
  Sender: FDA-Public Use
  Company Number: A02200402803

PATIENT
  Age: 27 Year
  Sex: Female

DRUGS (3)
  1. ELOXATIN [Suspect]
     Dosage: INTRAVENOUS NOS
     Route: 042
     Dates: start: 20031201, end: 20031201
  2. FLUOROURACIL [Suspect]
     Dosage: INTRAVENOUS NOS
     Route: 042
     Dates: start: 20040401, end: 20040401
  3. FOLINIC ACID - (FOLINIC ACID) - SOLUTION - UNIT DOSE : UNKNOWN [Suspect]
     Dosage: INTRAVENOUS NOS
     Route: 042
     Dates: start: 20040401, end: 20040401

REACTIONS (2)
  - ABORTION INDUCED [None]
  - PREGNANCY [None]
